FAERS Safety Report 4626710-9 (Version None)
Quarter: 2005Q2

REPORT INFORMATION
  Report Type: 
  Country: None (occurrence: None)
  Receive Date: 20050405
  Receipt Date: 20050325
  Transmission Date: 20051028
  Serious: Yes (Congenital Anomaly)
  Sender: FDA-Public Use
  Company Number: GB-ABBOTT-05P-167-0295301-00

PATIENT
  Age: 1 Month
  Sex: Male

DRUGS (2)
  1. EPILIM [Suspect]
     Indication: DRUG EXPOSURE DURING PREGNANCY
  2. CLONAZEPAM [Suspect]
     Indication: DRUG EXPOSURE DURING PREGNANCY

REACTIONS (15)
  - ANTERIOR CHAMBER CLEAVAGE SYNDROME [None]
  - ATRIAL SEPTAL DEFECT [None]
  - BICUSPID AORTIC VALVE [None]
  - BLOOD CALCIUM DECREASED [None]
  - BLOOD PHOSPHORUS INCREASED [None]
  - BREAST MALFORMATION [None]
  - CONGENITAL HAND MALFORMATION [None]
  - CONGENITAL MUSCULOSKELETAL ANOMALY [None]
  - CONGENITAL NAIL DISORDER [None]
  - CONGENITAL NOSE MALFORMATION [None]
  - CORNEAL OPACITY [None]
  - FACIAL DYSMORPHISM [None]
  - FOETAL VALPROATE SYNDROME [None]
  - HYPOSPADIAS [None]
  - LOW SET EARS [None]
